FAERS Safety Report 6305702-8 (Version None)
Quarter: 2009Q3

REPORT INFORMATION
  Report Type: 
  Country: None (occurrence: None)
  Receive Date: 20090807
  Receipt Date: 20090724
  Transmission Date: 20100115
  Serious: Yes (Other)
  Sender: FDA-Public Use
  Company Number: US-1168678

PATIENT
  Age: 84 Year
  Sex: Female

DRUGS (7)
  1. TRIESENCE [Suspect]
     Indication: MACULAR DEGENERATION
     Dosage: 4 MG INTRAVITREAL INJECTION OD INTRAOCULAR)
     Route: 031
     Dates: start: 20081022, end: 20081022
  2. NORVASC [Concomitant]
  3. ASPIRIN [Concomitant]
  4. ATENOLOL [Concomitant]
  5. HYDROCHLOROTHIAZIDE [Concomitant]
  6. COUMADIN [Concomitant]
  7. SPIRIVA [Concomitant]

REACTIONS (4)
  - HYPOPYON [None]
  - PSEUDOENDOPHTHALMITIS [None]
  - VISUAL ACUITY REDUCED [None]
  - VITRITIS [None]
